FAERS Safety Report 19239060 (Version 1)
Quarter: 2021Q2

REPORT INFORMATION
  Report Type: Spontaneous
  Country: US (occurrence: US)
  Receive Date: 20210510
  Receipt Date: 20210510
  Transmission Date: 20210717
  Serious: No
  Sender: FDA-Public Use
  Company Number: US-PFIZER INC-2021479883

PATIENT
  Age: 67 Year
  Sex: Female
  Weight: 83.9 kg

DRUGS (1)
  1. IBRANCE [Suspect]
     Active Substance: PALBOCICLIB
     Indication: BREAST CANCER
     Dosage: 125 MG, CYCLIC(DAILY FOR 21 DAYS EVERY 28 DAYS)
     Route: 048
     Dates: start: 20190701

REACTIONS (2)
  - Fatigue [Unknown]
  - Platelet count decreased [Unknown]
